FAERS Safety Report 4770876-7 (Version None)
Quarter: 2005Q3

REPORT INFORMATION
  Report Type: 
  Country: None (occurrence: None)
  Receive Date: 20050914
  Receipt Date: 20050829
  Transmission Date: 20060218
  Serious: Yes (Other)
  Sender: FDA-Public Use
  Company Number: S05-CAN-03092-01

PATIENT
  Age: 46 Year
  Sex: Male

DRUGS (9)
  1. CELEXA [Suspect]
     Dosage: 20 MG QD PO
     Route: 048
  2. PLAVIX [Suspect]
     Dosage: 75 MG PO
     Route: 048
  3. ADVAIR DISKUS 100/50 [Concomitant]
  4. ACETYLSALICYLIC ACID SRT [Concomitant]
  5. HYDROCHLOROTHIAZIDE [Concomitant]
  6. LIPITOR [Concomitant]
  7. MAVIXK (TRADOLAPRIL) [Concomitant]
  8. NONOCOR (BISOPROLOL FUMARTE) [Concomitant]
  9. REACTINE (CETIRIZINE HYDROCHLORIDE ) [Concomitant]

REACTIONS (2)
  - DERMATITIS ALLERGIC [None]
  - HYPERSENSITIVITY [None]
